FAERS Safety Report 24371621 (Version 3)
Quarter: 2024Q4

REPORT INFORMATION
  Report Type: Spontaneous
  Country: FR (occurrence: FR)
  Receive Date: 20240927
  Receipt Date: 20241021
  Transmission Date: 20250114
  Serious: Yes (Other)
  Sender: JOHNSON AND JOHNSON
  Company Number: None

PATIENT
  Age: 10 Year
  Sex: Male

DRUGS (1)
  1. TOPIRAMATE [Suspect]
     Active Substance: TOPIRAMATE
     Indication: Migraine
     Route: 048
     Dates: start: 20240626, end: 20240627

REACTIONS (3)
  - Asthmatic crisis [Unknown]
  - Anaphylactoid reaction [Unknown]
  - Rash [Unknown]

NARRATIVE: CASE EVENT DATE: 20240626
